FAERS Safety Report 4288720-3 (Version None)
Quarter: 2004Q1

REPORT INFORMATION
  Report Type: 
  Country: None (occurrence: None)
  Receive Date: 20040209
  Receipt Date: 20040203
  Transmission Date: 20041129
  Serious: Yes (Hospitalization, Disabling)
  Sender: FDA-Public Use
  Company Number: WAES 0402USA00295

PATIENT
  Sex: Female
  Weight: 100 kg

DRUGS (13)
  1. XANAX [Concomitant]
  2. ASPIRIN [Concomitant]
  3. ZITHROMAX [Concomitant]
  4. FOLIC ACID [Concomitant]
  5. GLUCOTROL [Concomitant]
  6. SYNTHROID [Concomitant]
  7. GLUCOPHAGE [Concomitant]
  8. PRILOSEC [Concomitant]
  9. PAXIL [Concomitant]
  10. ZOCOR [Suspect]
     Indication: BLOOD CHOLESTEROL INCREASED
     Route: 048
     Dates: end: 20040128
  11. HYTRIN [Concomitant]
  12. VERAPAMIL [Concomitant]
  13. COUMADIN [Concomitant]

REACTIONS (2)
  - ASTHENIA [None]
  - FALL [None]
